FAERS Safety Report 7900042-5 (Version None)
Quarter: 2011Q4

REPORT INFORMATION
  Report Type: 
  Country: None (occurrence: None)
  Receive Date: 20111108
  Receipt Date: 20111104
  Transmission Date: 20120403
  Serious: Yes (Hospitalization)
  Sender: FDA-Public Use
  Company Number: US-BIOGENIDEC-2011BI035775

PATIENT
  Age: 45 Year
  Sex: Female

DRUGS (1)
  1. TYSABRI [Suspect]
     Indication: MULTIPLE SCLEROSIS
     Route: 042
     Dates: start: 20101207, end: 20110701

REACTIONS (6)
  - OEDEMA PERIPHERAL [None]
  - ARTHRALGIA [None]
  - DRUG INEFFECTIVE [None]
  - MULTIPLE SCLEROSIS [None]
  - FAECES DISCOLOURED [None]
  - VISUAL IMPAIRMENT [None]
